FAERS Safety Report 24640835 (Version 1)
Quarter: 2024Q4

REPORT INFORMATION
  Report Type: Other
  Country: GB (occurrence: GB)
  Receive Date: 20241120
  Receipt Date: 20241120
  Transmission Date: 20250115
  Serious: Yes (Other)
  Sender: GLENMARK
  Company Number: None

PATIENT

DRUGS (1)
  1. ROSUVASTATIN CALCIUM [Suspect]
     Active Substance: ROSUVASTATIN CALCIUM
     Indication: Blood cholesterol abnormal
     Dosage: 5 MILLIGRAM
     Route: 065
     Dates: start: 20241012, end: 20241106

REACTIONS (7)
  - Eye swelling [Not Recovered/Not Resolved]
  - Nausea [Not Recovered/Not Resolved]
  - Headache [Not Recovered/Not Resolved]
  - Tenderness [Unknown]
  - Swelling of eyelid [Unknown]
  - Eye discharge [Unknown]
  - Eyelid disorder [Unknown]

NARRATIVE: CASE EVENT DATE: 20241012
